FAERS Safety Report 5692744-9 (Version None)
Quarter: 2008Q2

REPORT INFORMATION
  Report Type: 
  Country: None (occurrence: None)
  Receive Date: 20080401
  Receipt Date: 20080324
  Transmission Date: 20081010
  Serious: Yes (Life-Threatening, Hospitalization)
  Sender: FDA-Public Use
  Company Number: TAP2008Q00362

PATIENT
  Age: 75 Year
  Sex: Male

DRUGS (3)
  1. PREVPAC [Suspect]
     Indication: HELICOBACTER INFECTION
     Dosage: 0.5 CARD, 2 IN 1 D, PER ORAL
     Route: 048
     Dates: start: 20080223, end: 20080229
  2. BIAXIN [Suspect]
     Indication: HELICOBACTER INFECTION
     Dosage: 0.5 CARD, PER ORAL
     Route: 048
     Dates: start: 20080223, end: 20080229
  3. AMOXICILLIN [Suspect]
     Indication: HELICOBACTER INFECTION
     Dosage: 0.5 CARD, PER ORAL
     Route: 048
     Dates: start: 20080223, end: 20080229

REACTIONS (3)
  - CLOSTRIDIUM DIFFICILE COLITIS [None]
  - DEHYDRATION [None]
  - RENAL FAILURE ACUTE [None]
